FAERS Safety Report 19835716 (Version 1)
Quarter: 2021Q3

REPORT INFORMATION
  Report Type: Spontaneous
  Country: CA (occurrence: CA)
  Receive Date: 20210915
  Receipt Date: 20210915
  Transmission Date: 20211014
  Serious: Yes (Hospitalization)
  Sender: FDA-Public Use
  Company Number: CA-PFIZER INC-202101145007

PATIENT
  Age: 56 Year
  Sex: Female

DRUGS (12)
  1. GRASTOFIL [Concomitant]
     Active Substance: FILGRASTIM
     Dosage: SINGLE USE PRE?FILLED SYRINGE
     Route: 042
  2. TAXOL [Suspect]
     Active Substance: PACLITAXEL
     Indication: ENDOMETRIAL ADENOCARCINOMA
     Route: 042
  3. CENTRUM ADVANTAGE [Concomitant]
     Active Substance: VITAMINS
     Dosage: UNK
  4. VENTOLIN [Concomitant]
     Active Substance: ALBUTEROL SULFATE
     Dosage: UNK
     Route: 055
  5. DECADRON [Concomitant]
     Active Substance: DEXAMETHASONE
     Dosage: UNK
  6. LAX?A?DAY [Concomitant]
     Active Substance: POLYETHYLENE GLYCOL 3350
  7. NORVASC [Concomitant]
     Active Substance: AMLODIPINE BESYLATE
     Dosage: UNK
  8. STEMETIL [PROCHLORPERAZINE MESILATE] [Concomitant]
     Active Substance: PROCHLORPERAZINE DIMETHANESULFONATE
     Dosage: UNK
  9. CARBOPLATIN. [Suspect]
     Active Substance: CARBOPLATIN
     Indication: ENDOMETRIAL ADENOCARCINOMA
     Route: 042
  10. VITAMIN B6 [Concomitant]
     Active Substance: PYRIDOXINE HYDROCHLORIDE
     Dosage: UNK
  11. M?CAL [Concomitant]
     Dosage: SOLUTION D 400
  12. STATEX [MORPHINE SULFATE] [Concomitant]
     Active Substance: MORPHINE SULFATE
     Dosage: UNK

REACTIONS (8)
  - Skin necrosis [Recovered/Resolved with Sequelae]
  - Catheter site extravasation [Recovered/Resolved with Sequelae]
  - Skin graft [Recovered/Resolved with Sequelae]
  - Chemical burn [Recovered/Resolved with Sequelae]
  - Device issue [Recovered/Resolved with Sequelae]
  - Off label use [Unknown]
  - Debridement [Recovered/Resolved with Sequelae]
  - Superinfection bacterial [Recovered/Resolved with Sequelae]
